FAERS Safety Report 6016581-0 (Version None)
Quarter: 2008Q4

REPORT INFORMATION
  Report Type: 
  Country: None (occurrence: None)
  Receive Date: 20081222
  Receipt Date: 20081210
  Transmission Date: 20090506
  Serious: Yes (Hospitalization, Disabling)
  Sender: FDA-Public Use
  Company Number: PHHY2008GB07050

PATIENT
  Age: 46 Year

DRUGS (5)
  1. CARBAMAZEPINE [Suspect]
     Indication: EPILEPSY
     Dosage: 400 MG, 1 DAYS
     Route: 048
  2. TOPAMAX [Suspect]
     Indication: EPILEPSY
     Dosage: 100 MG, 2/1 DAYS
     Route: 065
  3. GABAPENTIN [Suspect]
     Indication: EPILEPSY
     Dosage: 900 MG, 2/1 DAYS
     Route: 065
  4. LAMOTRIGINE [Suspect]
     Indication: EPILEPSY
     Dosage: 200 MG, 2/1 DAYS
     Route: 048
  5. ACETAMINOPHEN [Concomitant]
     Route: 065

REACTIONS (4)
  - MACULAR DEGENERATION [None]
  - MACULOPATHY [None]
  - RETINAL DEPOSITS [None]
  - VISUAL ACUITY REDUCED [None]
